FAERS Safety Report 4706903-2 (Version None)
Quarter: 2005Q2

REPORT INFORMATION
  Report Type: 
  Country: None (occurrence: None)
  Receive Date: 20050630
  Receipt Date: 20050620
  Transmission Date: 20051028
  Serious: Yes (Hospitalization)
  Sender: FDA-Public Use
  Company Number: MK200506-0280-1

PATIENT
  Age: 79 Year
  Sex: Male

DRUGS (6)
  1. TRAMADOL HYDROCHLORIDE TABS 50MG [Suspect]
     Indication: BACK PAIN
  2. RAMIPRIL [Concomitant]
  3. ASPIRIN [Concomitant]
  4. FELODIPINE [Concomitant]
  5. SIMVASTATIN [Concomitant]
  6. SOTALOL HCL [Concomitant]

REACTIONS (4)
  - LARYNGEAL OEDEMA [None]
  - OEDEMA MUCOSAL [None]
  - RESPIRATORY DISTRESS [None]
  - TONGUE OEDEMA [None]
